FAERS Safety Report 4532284-3 (Version None)
Quarter: 2004Q4

REPORT INFORMATION
  Report Type: 
  Country: None (occurrence: None)
  Receive Date: 20041217
  Receipt Date: 20041206
  Transmission Date: 20050328
  Serious: Yes (Other)
  Sender: FDA-Public Use
  Company Number: 200412103BCC

PATIENT
  Age: 48 Year
  Sex: Female
  Weight: 61.2356 kg

DRUGS (3)
  1. ALEVE [Suspect]
     Indication: ANALGESIC EFFECT
     Dosage: 440 MG, ORAL
     Route: 048
     Dates: start: 20030801, end: 20031101
  2. TYLENOL [Suspect]
     Indication: PAIN
  3. ALLEGRA-D [Suspect]
     Indication: SEASONAL ALLERGY

REACTIONS (12)
  - ALCOHOL USE [None]
  - ANTIMITOCHONDRIAL ANTIBODY POSITIVE [None]
  - BLOOD THYROID STIMULATING HORMONE INCREASED [None]
  - BLOOD UREA INCREASED [None]
  - DIARRHOEA [None]
  - EFFUSION [None]
  - HEPATIC CIRRHOSIS [None]
  - HEPATITIS A ANTIBODY POSITIVE [None]
  - HEPATOSPLENOMEGALY [None]
  - HYPERLIPIDAEMIA [None]
  - RHINITIS SEASONAL [None]
  - TRANSFERRIN INCREASED [None]
